FAERS Safety Report 6091373-5 (Version None)
Quarter: 2009Q1

REPORT INFORMATION
  Report Type: 
  Country: None (occurrence: None)
  Receive Date: 20090225
  Receipt Date: 20081030
  Transmission Date: 20090719
  Serious: No
  Sender: FDA-Public Use
  Company Number: A0754267A

PATIENT
  Age: 64 Year
  Sex: Male

DRUGS (18)
  1. VERAMYST [Suspect]
     Indication: POSTNASAL DRIP
     Dosage: 4SPR PER DAY
     Route: 045
     Dates: start: 20080601
  2. PREVACID [Concomitant]
  3. HYDROCHLOROTHIAZIDE [Concomitant]
  4. MAGNESIUM SULFATE [Concomitant]
  5. DIAVAN [Concomitant]
  6. VERAPAMIL [Concomitant]
  7. HYDROCODONE [Concomitant]
  8. ASPIRIN [Concomitant]
  9. FOLTX [Concomitant]
  10. TRICOR [Concomitant]
  11. DICYCLOMINE [Concomitant]
  12. ZOLEDRONIC ACID [Concomitant]
  13. CALCIUM [Concomitant]
  14. LOVAZA [Concomitant]
  15. JANUVIA [Concomitant]
  16. IPRATROPIUM BROMIDE [Concomitant]
  17. FORTEO [Concomitant]
  18. CLINICAL STUDY MEDICATION [Concomitant]
     Dates: end: 20081028

REACTIONS (1)
  - BLOOD CORTISOL INCREASED [None]
